FAERS Safety Report 12610060 (Version 1)
Quarter: 2016Q3

REPORT INFORMATION
  Report Type: Spontaneous
  Country: US (occurrence: None)
  Receive Date: 20160729
  Receipt Date: 20160729
  Transmission Date: 20161109
  Serious: No
  Sender: FDA-Public Use
  Company Number: None

PATIENT
  Age: 46 Year
  Sex: Female
  Weight: 47.63 kg

DRUGS (2)
  1. MIRTAZAPINE 7.5MG, 7.5 MG [Suspect]
     Active Substance: MIRTAZAPINE
     Indication: INSOMNIA
     Dosage: 1 TABLET(S) AT BEDTIME TAKEN BY MOUTH
     Route: 048
     Dates: start: 20130820, end: 20130820
  2. MIRTAZAPINE 7.5MG, 7.5 MG [Suspect]
     Active Substance: MIRTAZAPINE
     Indication: WEIGHT GAIN POOR
     Dosage: 1 TABLET(S) AT BEDTIME TAKEN BY MOUTH
     Route: 048
     Dates: start: 20130820, end: 20130820

REACTIONS (2)
  - Neck pain [None]
  - Torticollis [None]

NARRATIVE: CASE EVENT DATE: 20130820
